FAERS Safety Report 22382377 (Version 1)
Quarter: 2023Q2

REPORT INFORMATION
  Report Type: Spontaneous
  Country: JP (occurrence: JP)
  Receive Date: 20230530
  Receipt Date: 20230530
  Transmission Date: 20230722
  Serious: Yes (Hospitalization)
  Sender: FDA-Public Use
  Company Number: JP-STRIDES ARCOLAB LIMITED-2023SP007876

PATIENT
  Age: 62 Year
  Sex: Male

DRUGS (6)
  1. ROSUVASTATIN [Interacting]
     Active Substance: ROSUVASTATIN
     Indication: Dyslipidaemia
     Dosage: 10 MILLIGRAM, PER DAY
     Route: 065
  2. ROSUVASTATIN [Interacting]
     Active Substance: ROSUVASTATIN
     Indication: Myocardial ischaemia
     Dosage: UNK, RE-STARTED IN SMALL DOSES
     Route: 065
  3. VADADUSTAT [Interacting]
     Active Substance: VADADUSTAT
     Indication: Dyslipidaemia
     Dosage: 300 MILLIGRAM, PER DAY
     Route: 065
  4. AZOSEMIDE [Suspect]
     Active Substance: AZOSEMIDE
     Indication: Peripheral swelling
     Dosage: 15 MILLIGRAM, PER DAY
     Route: 065
  5. METHOXY POLYETHYLENE GLYCOL-EPOETIN BETA [Concomitant]
     Active Substance: METHOXY POLYETHYLENE GLYCOL-EPOETIN BETA
     Indication: Nephrogenic anaemia
     Dosage: 100 MICROGRAM
     Route: 065
  6. METHOXY POLYETHYLENE GLYCOL-EPOETIN BETA [Concomitant]
     Active Substance: METHOXY POLYETHYLENE GLYCOL-EPOETIN BETA
     Dosage: UNK (AGAIN STARTED)
     Route: 065

REACTIONS (3)
  - Rhabdomyolysis [Recovered/Resolved]
  - Drug interaction [Unknown]
  - Off label use [Unknown]
